FAERS Safety Report 5704001-2 (Version None)
Quarter: 2008Q2

REPORT INFORMATION
  Report Type: 
  Country: None (occurrence: None)
  Receive Date: 20080414
  Receipt Date: 20080407
  Transmission Date: 20081010
  Serious: Yes (Life-Threatening, Hospitalization, Other)
  Sender: FDA-Public Use
  Company Number: DK-JNJFOC-20071001286

PATIENT
  Age: 41 Year
  Sex: Male
  Weight: 55 kg

DRUGS (6)
  1. REMICADE [Suspect]
     Indication: ANKYLOSING SPONDYLITIS
     Route: 042
  2. REMICADE [Suspect]
     Dosage: CORRESPONDING TO 300 MG IV
     Route: 042
  3. CONFORTID [Concomitant]
     Dosage: STARTED BEFORE 1996
  4. AMITRIPTYLINE HCL [Concomitant]
     Dosage: STARTED BEFORE 2003
  5. PINEX [Concomitant]
     Dosage: STARTED BEFORE 1996
  6. METHOTREXATE [Concomitant]
     Indication: ANKYLOSING SPONDYLITIS
     Route: 048

REACTIONS (1)
  - MYCOBACTERIUM AVIUM COMPLEX INFECTION [None]
